FAERS Safety Report 9081823 (Version 1)
Quarter: 2013Q1

REPORT INFORMATION
  Report Type: Report from Study
  Country: US (occurrence: US)
  Receive Date: 20130130
  Receipt Date: 20130130
  Transmission Date: 20140127
  Serious: No
  Sender: FDA-Public Use
  Company Number: US-ABBOTT-12P-163-0978953-00

PATIENT
  Sex: Female
  Weight: 98.06 kg

DRUGS (13)
  1. HUMIRA [Suspect]
     Indication: RHEUMATOID ARTHRITIS
     Dates: start: 2011
  2. HUMIRA [Suspect]
     Indication: PSORIASIS
  3. COREG [Concomitant]
     Indication: HYPERTENSION
  4. FUROSEMIDE (NON-ABBOTT) [Concomitant]
     Indication: FLUID RETENTION
  5. GLIMEPIRIDE [Concomitant]
     Indication: DIABETES MELLITUS
  6. GLUCOPHAGE [Concomitant]
     Indication: DIABETES MELLITUS
  7. METFORMIN (NON-ABBOTT) [Concomitant]
     Indication: DIABETES MELLITUS
  8. MULTIVITAMIN (NON-ABBOTT) [Concomitant]
     Indication: VITAMIN SUPPLEMENTATION
  9. POTASSIUM (NON-ABBOTT) [Concomitant]
     Indication: MINERAL SUPPLEMENTATION
  10. PROZAC [Concomitant]
     Indication: DEPRESSION
  11. ZOCOR [Concomitant]
     Indication: BLOOD CHOLESTEROL INCREASED
  12. COLCRYS [Concomitant]
     Indication: GOUT
  13. ALLOPURINOL (NON-ABBOTT) [Concomitant]
     Indication: GOUT

REACTIONS (2)
  - Musculoskeletal stiffness [Not Recovered/Not Resolved]
  - Headache [Not Recovered/Not Resolved]
